FAERS Safety Report 4401046-X (Version None)
Quarter: 2004Q3

REPORT INFORMATION
  Report Type: 
  Country: None (occurrence: None)
  Receive Date: 20040907
  Receipt Date: 20031007
  Transmission Date: 20050211
  Serious: No
  Sender: FDA-Public Use
  Company Number: US-BRISTOL-MYERS SQUIBB COMPANY-12405536

PATIENT
  Age: 67 Year
  Sex: Female
  Weight: 78 kg

DRUGS (13)
  1. COUMADIN [Suspect]
     Indication: CORONARY ARTERY OCCLUSION
     Dosage: DOSE VARIED TAKING 3 MG DAILY AT PRESENT.
     Route: 048
     Dates: start: 20030101
  2. SYNTHROID [Concomitant]
  3. HYDROCODONE + ACETAMINOPHEN [Concomitant]
  4. DIOVAN [Concomitant]
  5. TOPROL-XL [Concomitant]
  6. BEXTRA [Concomitant]
  7. FUROSEMIDE [Concomitant]
  8. ACCUPRIL [Concomitant]
  9. PROTONIX [Concomitant]
  10. LIPITOR [Concomitant]
  11. CLONAZEPAM [Concomitant]
  12. MAGNESIUM OXIDE [Concomitant]
  13. HYOSCYAMINE [Concomitant]

REACTIONS (3)
  - DRY MOUTH [None]
  - DYSGEUSIA [None]
  - TOOTH DISORDER [None]
